FAERS Safety Report 8203176-3 (Version None)
Quarter: 2012Q1

REPORT INFORMATION
  Report Type: 
  Country: None (occurrence: None)
  Receive Date: 20120312
  Receipt Date: 20120305
  Transmission Date: 20120608
  Serious: Yes (Death, Hospitalization)
  Sender: FDA-Public Use
  Company Number: CHPA2012ZA003134

PATIENT
  Sex: Female

DRUGS (4)
  1. BROMAZEPAM [Concomitant]
     Dosage: 0.5 DF, QN
     Route: 048
  2. EXCEDRIN (MIGRAINE) [Suspect]
     Indication: BACK PAIN
     Dosage: 2 DF, QD
     Route: 048
  3. PHARMAPRESS CO [Concomitant]
     Dosage: 1 DF, QD
     Route: 048
  4. LEVOTHYROXINE SODIUM [Concomitant]
     Dosage: 100 UG DAILY
     Route: 048

REACTIONS (7)
  - VOMITING [None]
  - CARDIAC FAILURE [None]
  - SENSATION OF FOREIGN BODY [None]
  - BLOOD PRESSURE DECREASED [None]
  - FEELING ABNORMAL [None]
  - CHOKING SENSATION [None]
  - DYSPHAGIA [None]
